FAERS Safety Report 5120447-8 (Version None)
Quarter: 2006Q4

REPORT INFORMATION
  Report Type: 
  Country: None (occurrence: None)
  Receive Date: 20061004
  Receipt Date: 20060928
  Transmission Date: 20070319
  Serious: Yes (Hospitalization, Disabling)
  Sender: FDA-Public Use
  Company Number: 2006AP04542

PATIENT
  Age: 74 Year
  Sex: Male

DRUGS (2)
  1. ZOLADEX [Suspect]
     Indication: PROSTATE CANCER
     Route: 058
     Dates: start: 20060501, end: 20060829
  2. ANTIHYPERTENSIVE [Suspect]
     Route: 048
     Dates: start: 20060501, end: 20060801

REACTIONS (1)
  - HAEMOLYTIC ANAEMIA [None]
